FAERS Safety Report 15127301 (Version 2)
Quarter: 2018Q3

REPORT INFORMATION
  Report Type: Spontaneous
  Country: US (occurrence: US)
  Receive Date: 20180710
  Receipt Date: 20180724
  Transmission Date: 20181010
  Serious: Yes (Other)
  Sender: FDA-Public Use
  Company Number: US-NAPPMUNDI-USA-2018-0144104

PATIENT
  Age: 60 Year
  Sex: Male

DRUGS (1)
  1. OXYCODONE HYDROCHLORIDE. [Suspect]
     Active Substance: OXYCODONE HYDROCHLORIDE
     Indication: PAIN
     Dosage: 5 MG, QID PRN
     Route: 048
     Dates: start: 201612

REACTIONS (9)
  - Malaise [Recovered/Resolved]
  - Fatigue [Unknown]
  - Nephrolithiasis [Not Recovered/Not Resolved]
  - Product formulation issue [Unknown]
  - Clostridium difficile infection [Recovered/Resolved]
  - Weight decreased [Recovered/Resolved]
  - Nausea [Recovered/Resolved]
  - Sinusitis [Not Recovered/Not Resolved]
  - Vomiting [Recovered/Resolved]

NARRATIVE: CASE EVENT DATE: 201701
